FAERS Safety Report 12969051 (Version 1)
Quarter: 2016Q4

REPORT INFORMATION
  Report Type: Spontaneous
  Country: US (occurrence: US)
  Receive Date: 20161123
  Receipt Date: 20161123
  Transmission Date: 20170207
  Serious: Yes (Death, Life-Threatening, Other)
  Sender: FDA-Public Use
  Company Number: US-SYNEX-T201606028

PATIENT
  Age: 0 Year
  Sex: Female
  Weight: 3 kg

DRUGS (2)
  1. OXYGEN. [Concomitant]
     Active Substance: OXYGEN
     Dosage: UNK
     Dates: start: 201611, end: 201611
  2. INOMAX [Suspect]
     Active Substance: NITRIC OXIDE
     Indication: PRODUCT USED FOR UNKNOWN INDICATION
     Dosage: 20PPM
     Dates: start: 201611, end: 201611

REACTIONS (5)
  - Pneumothorax [Unknown]
  - Oxygen saturation decreased [Unknown]
  - Pulse absent [Unknown]
  - Death [Fatal]
  - Device issue [Unknown]

NARRATIVE: CASE EVENT DATE: 201611
